FAERS Safety Report 8899226 (Version 4)
Quarter: 2014Q1

REPORT INFORMATION
  Report Type: Spontaneous
  Country: US (occurrence: US)
  Receive Date: 20121109
  Receipt Date: 20140306
  Transmission Date: 20141002
  Serious: No
  Sender: FDA-Public Use
  Company Number: US-009507513-1211USA003026

PATIENT
  Sex: Male
  Weight: 103.86 kg

DRUGS (8)
  1. PROPECIA [Suspect]
     Indication: ANDROGENETIC ALOPECIA
     Dosage: 1 MG, UNK
     Route: 048
     Dates: start: 20081120
  2. PROPECIA [Suspect]
     Dosage: 1 MG, UNK
     Route: 048
     Dates: start: 20090302, end: 20110818
  3. CYCLOBENZAPRINE HYDROCHLORIDE [Concomitant]
     Indication: MUSCLE SPASMS
     Dosage: UNK
     Dates: start: 20080514, end: 20110804
  4. LYRICA [Concomitant]
     Indication: PAIN
     Dosage: 150 MG, BID
     Route: 048
     Dates: start: 20060118
  5. MELOXICAM [Concomitant]
     Indication: TENDERNESS
     Dosage: UNK
     Dates: start: 20100520, end: 20110814
  6. MELOXICAM [Concomitant]
     Indication: SWELLING
  7. MELOXICAM [Concomitant]
     Indication: PAIN
  8. FLEXERIL [Concomitant]
     Indication: MUSCLE SPASMS
     Dosage: 10 MG, TID PRN
     Route: 048

REACTIONS (4)
  - Cognitive disorder [Not Recovered/Not Resolved]
  - Hypertension [Unknown]
  - Erectile dysfunction [Unknown]
  - Libido decreased [Unknown]
